FAERS Safety Report 5394630-0 (Version None)
Quarter: 2007Q3

REPORT INFORMATION
  Report Type: 
  Country: None (occurrence: None)
  Receive Date: 20070723
  Receipt Date: 20070713
  Transmission Date: 20080115
  Serious: Yes (Hospitalization, Other)
  Sender: FDA-Public Use
  Company Number: JP-ELI_LILLY_AND_COMPANY-JP200707003135

PATIENT
  Age: 77 Year
  Sex: Female

DRUGS (2)
  1. PEMETREXED [Suspect]
     Indication: PLEURAL MESOTHELIOMA MALIGNANT
     Dosage: UNK, OTHER
     Route: 042
     Dates: start: 20070406
  2. CISPLATIN [Suspect]
     Indication: PLEURAL MESOTHELIOMA MALIGNANT
     Dosage: UNK, OTHER
     Route: 042
     Dates: start: 20070406

REACTIONS (6)
  - ANEURYSM [None]
  - ATRIAL FIBRILLATION [None]
  - CARDIAC FAILURE [None]
  - HYPOPROTEINAEMIA [None]
  - OEDEMA [None]
  - RENAL IMPAIRMENT [None]
